FAERS Safety Report 9738443 (Version 1)
Quarter: 2013Q4

REPORT INFORMATION
  Report Type: Report from Study
  Country: CO (occurrence: CO)
  Receive Date: 20131208
  Receipt Date: 20131208
  Transmission Date: 20140711
  Serious: Yes (Other)
  Sender: FDA-Public Use
  Company Number: CO-ROCHE-1313577

PATIENT
  Age: 53 Year
  Sex: Female

DRUGS (2)
  1. MIRCERA [Suspect]
     Indication: RENAL FAILURE CHRONIC
     Route: 058
  2. MIRCERA [Suspect]
     Indication: ANAEMIA

REACTIONS (1)
  - Bronchitis [Recovering/Resolving]
